FAERS Safety Report 22083366 (Version 9)
Quarter: 2025Q2

REPORT INFORMATION
  Report Type: Report from Study
  Country: CA (occurrence: CA)
  Receive Date: 20230310
  Receipt Date: 20250522
  Transmission Date: 20250717
  Serious: Yes (Other)
  Sender: TAKEDA
  Company Number: CA-TAKEDA-2023TUS025005

PATIENT
  Age: 37 Year
  Sex: Female

DRUGS (5)
  1. VEDOLIZUMAB [Suspect]
     Active Substance: VEDOLIZUMAB
     Indication: Colitis ulcerative
  2. VEDOLIZUMAB [Suspect]
     Active Substance: VEDOLIZUMAB
  3. VEDOLIZUMAB [Suspect]
     Active Substance: VEDOLIZUMAB
  4. VEDOLIZUMAB [Suspect]
     Active Substance: VEDOLIZUMAB
     Dosage: 300 MILLIGRAM, Q4WEEKS
     Dates: start: 20240620
  5. MESALAMINE [Concomitant]
     Active Substance: MESALAMINE

REACTIONS (10)
  - Abdominal pain lower [Not Recovered/Not Resolved]
  - Colitis ulcerative [Unknown]
  - Haematochezia [Unknown]
  - Rectal haemorrhage [Unknown]
  - Abdominal distension [Not Recovered/Not Resolved]
  - Therapeutic reaction time decreased [Unknown]
  - Product dose omission issue [Unknown]
  - Stress [Unknown]
  - Haemorrhoids [Unknown]
  - Hypersensitivity [Unknown]

NARRATIVE: CASE EVENT DATE: 20210316
